FAERS Safety Report 6990445-8 (Version None)
Quarter: 2010Q3

REPORT INFORMATION
  Report Type: 
  Country: None (occurrence: None)
  Receive Date: 20100916
  Receipt Date: 20100609
  Transmission Date: 20110219
  Serious: Yes (Hospitalization)
  Sender: FDA-Public Use
  Company Number: DE-PFIZER INC-2010071935

PATIENT
  Age: 89 Year
  Sex: Female

DRUGS (14)
  1. LYRICA [Suspect]
     Dosage: 100 MG/DAY
     Route: 048
  2. PROTHIPENDYL [Suspect]
     Dosage: 40 MG/DAY
     Route: 048
     Dates: end: 20091019
  3. MIRTAZAPINE [Concomitant]
     Dosage: 15 MG/DAY
     Route: 048
  4. OXAZEPAM [Concomitant]
     Dosage: 10 MG/DAY
     Route: 048
     Dates: end: 20091019
  5. OXAZEPAM [Concomitant]
     Dosage: 20 MG/DAY
     Route: 048
     Dates: start: 20091020, end: 20091027
  6. LORAZEPAM [Concomitant]
     Dosage: 1.5 MG/DAY
     Route: 048
     Dates: end: 20091011
  7. LORAZEPAM [Concomitant]
     Dosage: 1 MG/DAY
     Route: 048
     Dates: start: 20091012, end: 20091028
  8. PASPERTIN [Concomitant]
     Dosage: 30 MG/DAY
     Route: 048
     Dates: end: 20091007
  9. PASPERTIN [Concomitant]
     Dosage: 60 MG/DAY
     Route: 048
     Dates: start: 20091008
  10. DELIX [Concomitant]
     Dosage: 5 MG/DAY
     Route: 048
     Dates: start: 20091012
  11. NITRENDEPAT [Concomitant]
     Dosage: 40 MG/DAY
     Route: 048
  12. PANTOPRAZOLE SODIUM [Concomitant]
     Dosage: 40 MG/DAY
     Route: 048
  13. CLEXANE [Concomitant]
     Dosage: 120 MG/DAY
     Route: 058
     Dates: start: 20091012
  14. CARBIDOPA AND LEVODOPA [Concomitant]
     Dosage: [LEVODOPA 100MG]/[CARBIDOPA 25 MG]/DAY
     Route: 048

REACTIONS (1)
  - ELECTROCARDIOGRAM QT PROLONGED [None]
